FAERS Safety Report 20802476 (Version 1)
Quarter: 2022Q2

REPORT INFORMATION
  Report Type: Spontaneous
  Country: US (occurrence: None)
  Receive Date: 20220508
  Receipt Date: 20220508
  Transmission Date: 20220721
  Serious: No
  Sender: FDA-Public Use
  Company Number: None

PATIENT
  Age: 44 Year
  Sex: Female
  Weight: 101.25 kg

DRUGS (3)
  1. NYSTATIN [Suspect]
     Active Substance: NYSTATIN
     Indication: Oral candidiasis
     Dosage: OTHER STRENGTH : 100,000 UNIT/ML;?FREQUENCY : 4 TIMES A DAY;?
     Route: 048
     Dates: start: 20220506, end: 20220507
  2. METOPROLOL SUCCINATE [Concomitant]
     Active Substance: METOPROLOL SUCCINATE
  3. PANTOPRAZOLE [Concomitant]
     Active Substance: PANTOPRAZOLE

REACTIONS (5)
  - Abdominal discomfort [None]
  - Vomiting [None]
  - Eructation [None]
  - Dysphonia [None]
  - Throat irritation [None]

NARRATIVE: CASE EVENT DATE: 20220506
